FAERS Safety Report 6039928-8 (Version None)
Quarter: 2009Q1

REPORT INFORMATION
  Report Type: 
  Country: None (occurrence: None)
  Receive Date: 20090116
  Receipt Date: 20090115
  Transmission Date: 20090719
  Serious: Yes (Death)
  Sender: FDA-Public Use
  Company Number: CA-ASTRAZENECA-2009UW01261

PATIENT
  Age: 62 Year
  Sex: Male
  Weight: 73 kg

DRUGS (6)
  1. OMEPRAZOLE [Suspect]
     Route: 048
     Dates: start: 20030101
  2. ASPIRIN [Concomitant]
  3. CIALIS [Concomitant]
  4. CRESTOR [Concomitant]
  5. METFORMIN [Concomitant]
  6. PRINIVIL [Concomitant]

REACTIONS (1)
  - MYOCARDIAL INFARCTION [None]
